FAERS Safety Report 19013066 (Version 2)
Quarter: 2021Q1

REPORT INFORMATION
  Report Type: Spontaneous
  Country: US (occurrence: US)
  Receive Date: 20210315
  Receipt Date: 20210322
  Transmission Date: 20210420
  Serious: No
  Sender: FDA-Public Use
  Company Number: US-SUNOVION-2021SUN000786

PATIENT
  Age: 12 Year
  Sex: Female

DRUGS (3)
  1. LATUDA [Suspect]
     Active Substance: LURASIDONE HYDROCHLORIDE
     Dosage: 10 MG
     Route: 048
  2. OLANZAPINE. [Suspect]
     Active Substance: OLANZAPINE
     Dosage: UNK
  3. LATUDA [Suspect]
     Active Substance: LURASIDONE HYDROCHLORIDE
     Indication: PRODUCT USED FOR UNKNOWN INDICATION
     Dosage: 10 MG, QD (1/2 OF 20MG)
     Route: 048

REACTIONS (7)
  - Depression [Unknown]
  - Energy increased [Not Recovered/Not Resolved]
  - Mania [Unknown]
  - Wrong technique in product usage process [Unknown]
  - Aggression [Unknown]
  - Somnambulism [Unknown]
  - Irregular sleep wake rhythm disorder [Unknown]
